FAERS Safety Report 6985905-X (Version None)
Quarter: 2010Q3

REPORT INFORMATION
  Report Type: 
  Country: None (occurrence: None)
  Receive Date: 20100827
  Receipt Date: 20100721
  Transmission Date: 20110219
  Serious: No
  Sender: FDA-Public Use
  Company Number: 015741

PATIENT
  Sex: Female
  Weight: 68 kg

DRUGS (1)
  1. LACOSAMIDE [Suspect]
     Dosage: 50 MG AND 100 MG AS STRENGTH ORAL
     Route: 048
     Dates: end: 20100701

REACTIONS (4)
  - ASTHENIA [None]
  - BALANCE DISORDER [None]
  - BLOOD PRESSURE INCREASED [None]
  - DIZZINESS [None]
